FAERS Safety Report 10365364 (Version 1)
Quarter: 2014Q3

REPORT INFORMATION
  Report Type: Spontaneous
  Country: US (occurrence: US)
  Receive Date: 20140806
  Receipt Date: 20140806
  Transmission Date: 20150326
  Serious: Yes (Other)
  Sender: FDA-Public Use
  Company Number: US-TARO PHARMACEUTICALS U.S.A, INC-2014SUN01781

PATIENT

DRUGS (1)
  1. WARFARIN [Suspect]
     Active Substance: WARFARIN
     Indication: ANTICOAGULANT THERAPY
     Route: 065

REACTIONS (4)
  - Swollen tongue [Recovering/Resolving]
  - Dyspnoea [Recovering/Resolving]
  - Spontaneous haematoma [Recovering/Resolving]
  - International normalised ratio increased [Recovering/Resolving]
